FAERS Safety Report 14524885 (Version 1)
Quarter: 2018Q1

REPORT INFORMATION
  Report Type: Spontaneous
  Country: US (occurrence: US)
  Receive Date: 20180210
  Receipt Date: 20180210
  Transmission Date: 20180509
  Serious: No
  Sender: FDA-Public Use
  Company Number: None

PATIENT
  Age: 40 Year
  Sex: Female

DRUGS (1)
  1. ENTECAVIR TAB 0.5MG [Suspect]
     Active Substance: ENTECAVIR

REACTIONS (5)
  - Dizziness [None]
  - Abdominal pain upper [None]
  - Decreased appetite [None]
  - Headache [None]
  - Chromaturia [None]

NARRATIVE: CASE EVENT DATE: 20180210
